FAERS Safety Report 12280371 (Version 4)
Quarter: 2017Q3

REPORT INFORMATION
  Report Type: Spontaneous
  Country: US (occurrence: US)
  Receive Date: 20160419
  Receipt Date: 20170901
  Transmission Date: 20171127
  Serious: Yes (Life-Threatening, Other)
  Sender: FDA-Public Use
  Company Number: US-ASTRAZENECA-2016SE40097

PATIENT
  Age: 873 Month
  Sex: Female
  Weight: 74.8 kg

DRUGS (25)
  1. GABAPENTIN. [Concomitant]
     Active Substance: GABAPENTIN
     Route: 048
  2. MIRALAX [Concomitant]
     Active Substance: POLYETHYLENE GLYCOL 3350
     Dosage: AS DIRECTED
  3. MOBIC [Concomitant]
     Active Substance: MELOXICAM
     Dosage: DAILY
     Route: 048
  4. PANTOPRAZOLE [Concomitant]
     Active Substance: PANTOPRAZOLE
     Dosage: 20 MG
     Dates: start: 20170515
  5. BIOTIN [Concomitant]
     Active Substance: BIOTIN
     Dosage: DAILY
     Route: 048
  6. CHOLESTYRAMINE. [Concomitant]
     Active Substance: CHOLESTYRAMINE
     Dosage: AS NEEDED
     Route: 048
  7. MELOXICAM. [Concomitant]
     Active Substance: MELOXICAM
     Dosage: 15 MG
     Dates: start: 20170523
  8. OLANZAPINE. [Concomitant]
     Active Substance: OLANZAPINE
     Route: 048
  9. OLANZAPINE. [Concomitant]
     Active Substance: OLANZAPINE
     Dosage: 5 MG
     Dates: start: 20170530
  10. OMEPRAZOLE. [Suspect]
     Active Substance: OMEPRAZOLE
     Indication: GASTROOESOPHAGEAL REFLUX DISEASE
     Route: 048
     Dates: start: 201407
  11. LYNPARZA [Suspect]
     Active Substance: OLAPARIB
     Indication: OVARIAN CANCER
     Route: 048
     Dates: start: 201605
  12. CALCIUM + D [Concomitant]
     Active Substance: CALCIUM\VITAMIN D
     Dosage: DAILY
     Route: 048
  13. CYMBALTA [Concomitant]
     Active Substance: DULOXETINE HYDROCHLORIDE
     Dosage: 60MG
     Route: 048
     Dates: start: 20170515
  14. MULTIVITAMIN [Concomitant]
     Active Substance: VITAMINS
     Route: 048
  15. ULTRAM [Concomitant]
     Active Substance: TRAMADOL HYDROCHLORIDE
     Dosage: 50 MG
     Dates: start: 20170404
  16. OMEPRAZOLE. [Suspect]
     Active Substance: OMEPRAZOLE
     Indication: GASTRIC ULCER
     Route: 048
     Dates: start: 201407
  17. SENOKOT [Concomitant]
     Active Substance: SENNOSIDES
     Dosage: AS DIRECTED
     Route: 048
  18. VITAMIN B12 [Concomitant]
     Active Substance: CYANOCOBALAMIN
  19. ASPIRIN. [Concomitant]
     Active Substance: ASPIRIN
     Route: 048
  20. IMITREX [Concomitant]
     Active Substance: SUMATRIPTAN SUCCINATE
     Route: 048
  21. VITAMIN B-6 [Concomitant]
     Active Substance: PYRIDOXINE
     Route: 048
  22. LYNPARZA [Suspect]
     Active Substance: OLAPARIB
     Indication: OVARIAN CANCER
     Route: 048
  23. LYNPARZA [Suspect]
     Active Substance: OLAPARIB
     Indication: OVARIAN CANCER
     Dosage: 50.0MG UNKNOWN
     Route: 048
     Dates: start: 20170425
  24. LYNPARZA [Suspect]
     Active Substance: OLAPARIB
     Indication: OVARIAN CANCER
     Route: 048
     Dates: start: 201507
  25. TRAZODONE [Concomitant]
     Active Substance: TRAZODONE HYDROCHLORIDE
     Dosage: AS REQUIRED
     Route: 048

REACTIONS (14)
  - Malignant neoplasm progression [Unknown]
  - Off label use [Unknown]
  - Fatigue [Unknown]
  - Cognitive disorder [Unknown]
  - Anxiety [Not Recovered/Not Resolved]
  - Anaemia [Recovered/Resolved]
  - Hot flush [Unknown]
  - Serous cystadenocarcinoma ovary [Not Recovered/Not Resolved]
  - Tenderness [Unknown]
  - Nausea [Not Recovered/Not Resolved]
  - Paraesthesia [Not Recovered/Not Resolved]
  - Erythema [Unknown]
  - Arthralgia [Not Recovered/Not Resolved]
  - Hypersensitivity [Not Recovered/Not Resolved]

NARRATIVE: CASE EVENT DATE: 201409
